FAERS Safety Report 19308505 (Version 1)
Quarter: 2021Q2

REPORT INFORMATION
  Report Type: Spontaneous
  Country: US (occurrence: US)
  Receive Date: 20210526
  Receipt Date: 20210526
  Transmission Date: 20210717
  Serious: No
  Sender: FDA-Public Use
  Company Number: None

PATIENT
  Age: 75 Year
  Sex: Male
  Weight: 103.5 kg

DRUGS (3)
  1. DAYVIGO [Suspect]
     Active Substance: LEMBOREXANT
     Indication: INSOMNIA
     Dates: start: 20210526, end: 20210526
  2. VIT B [Concomitant]
     Active Substance: VITAMIN B
  3. ZOLPIDEM [Concomitant]
     Active Substance: ZOLPIDEM TARTRATE

REACTIONS (3)
  - Anxiety [None]
  - Insomnia [None]
  - Restlessness [None]

NARRATIVE: CASE EVENT DATE: 20210526
